FAERS Safety Report 5675021-1 (Version None)
Quarter: 2008Q1

REPORT INFORMATION
  Report Type: 
  Country: None (occurrence: None)
  Receive Date: 20080320
  Receipt Date: 20080318
  Transmission Date: 20080703
  Serious: Yes (Life-Threatening)
  Sender: FDA-Public Use
  Company Number: PHEH2008US02670

PATIENT
  Sex: Female

DRUGS (1)
  1. ZELNORM [Suspect]
     Indication: IRRITABLE BOWEL SYNDROME
     Dosage: UNK, UNK
     Route: 048

REACTIONS (1)
  - SUICIDAL IDEATION [None]
